FAERS Safety Report 5801587-4 (Version None)
Quarter: 2008Q3

REPORT INFORMATION
  Report Type: 
  Country: None (occurrence: None)
  Receive Date: 20080703
  Receipt Date: 20080703
  Transmission Date: 20090109
  Serious: Yes (Hospitalization)
  Sender: FDA-Public Use
  Company Number: None

PATIENT
  Sex: Male
  Weight: 88 kg

DRUGS (19)
  1. BORTEZOMIB MILLENNIUM [Suspect]
     Indication: NON-SMALL CELL LUNG CANCER METASTATIC
     Dosage: 2.6 MG WEEKLY X2 WEEKS IV DRIP
     Route: 041
     Dates: start: 20080215, end: 20080620
  2. BEVACIZUMAB GENENTEC [Suspect]
     Indication: NON-SMALL CELL LUNG CANCER METASTATIC
     Dosage: 1345 MG ONCE EVERY 3 WEEKS IV DRIP
     Route: 041
     Dates: start: 20080215, end: 20080620
  3. LISINOPRIL [Concomitant]
  4. ZOFRAN [Concomitant]
  5. METFORMIN [Concomitant]
  6. METOPROLOL [Concomitant]
  7. ASPIRIN [Concomitant]
  8. COMPAZINE [Concomitant]
  9. ISOSORBIDE DINITRATE [Concomitant]
  10. OXYCODONE HCL [Concomitant]
  11. NITROGLYCERIN [Concomitant]
  12. PERCOCET [Concomitant]
  13. SIMVASTIN [Concomitant]
  14. ACTOS [Concomitant]
  15. ZETIA [Concomitant]
  16. GLYBURIDE [Concomitant]
  17. PROTONIX [Concomitant]
  18. GLIPIZIDE [Concomitant]
  19. CARBOPLATIN [Concomitant]

REACTIONS (5)
  - ABDOMINAL PAIN [None]
  - DEHYDRATION [None]
  - HYPOMAGNESAEMIA [None]
  - NAUSEA [None]
  - VOMITING [None]
